FAERS Safety Report 20560071 (Version 1)
Quarter: 2022Q1

REPORT INFORMATION
  Report Type: Report from Study
  Country: US (occurrence: US)
  Receive Date: 20220307
  Receipt Date: 20220307
  Transmission Date: 20220424
  Serious: Yes (Other)
  Sender: FDA-Public Use
  Company Number: US-PFIZER INC-202200334403

PATIENT
  Age: 59 Year
  Sex: Female

DRUGS (6)
  1. TEMSIROLIMUS [Suspect]
     Active Substance: TEMSIROLIMUS
     Indication: Endometrial cancer
     Dosage: 10 MG, CYCLIC (DAY 1, 8 15, 22 OF EACH CYCLE OVER 30 MIN, WEEKLY)
     Route: 042
  2. CEDIRANIB [Suspect]
     Active Substance: CEDIRANIB
     Indication: Endometrial cancer
     Dosage: 15 MG, DAILY
     Route: 048
  3. RANITIDINE [Concomitant]
     Active Substance: RANITIDINE
     Indication: Premedication
  4. DIPHENHYDRAMINE [Concomitant]
     Active Substance: DIPHENHYDRAMINE
     Indication: Premedication
  5. DECADRON [Concomitant]
     Active Substance: DEXAMETHASONE
     Indication: Premedication
  6. ZOFRAN [Concomitant]
     Active Substance: ONDANSETRON HYDROCHLORIDE
     Indication: Premedication

REACTIONS (4)
  - Vision blurred [Unknown]
  - Liver function test abnormal [Unknown]
  - Thrombocytopenia [Unknown]
  - Hypertension [Unknown]
